FAERS Safety Report 13971995 (Version 1)
Quarter: 2017Q3

REPORT INFORMATION
  Report Type: Spontaneous
  Country: US (occurrence: US)
  Receive Date: 20170915
  Receipt Date: 20170915
  Transmission Date: 20171128
  Serious: Yes (Disabling)
  Sender: FDA-Public Use
  Company Number: None

PATIENT
  Sex: Female
  Weight: 78.75 kg

DRUGS (14)
  1. VITAMIN D [Concomitant]
     Active Substance: CHOLECALCIFEROL
  2. MELATONIN [Concomitant]
     Active Substance: MELATONIN
  3. ONDANSETRON [Concomitant]
     Active Substance: ONDANSETRON
  4. SUMATRIPTAN SUCCINATE INJECTION [Suspect]
     Active Substance: SUMATRIPTAN SUCCINATE
     Indication: MIGRAINE
     Dosage: ?          QUANTITY:1 INJECTION(S);?
     Route: 058
     Dates: start: 20060401, end: 20170330
  5. NAPROXEN. [Concomitant]
     Active Substance: NAPROXEN
  6. TOPAMAX [Concomitant]
     Active Substance: TOPIRAMATE
  7. LEVOTHYROXINE. [Concomitant]
     Active Substance: LEVOTHYROXINE
  8. PREDNISONE. [Concomitant]
     Active Substance: PREDNISONE
  9. TURMERIC [Concomitant]
     Active Substance: HERBALS\TURMERIC
  10. ERGOTAMINE [Concomitant]
     Active Substance: CAFFEINE\ERGOTAMINE\ERGOTAMINE TARTRATE
  11. KETOROLAC IM [Concomitant]
  12. BANDAID [Concomitant]
  13. MAGNESIUM [Concomitant]
     Active Substance: MAGNESIUM
  14. VITAMIN B2 [Concomitant]
     Active Substance: RIBOFLAVIN

REACTIONS (2)
  - Retinal vein occlusion [None]
  - Product quality issue [None]

NARRATIVE: CASE EVENT DATE: 20170320
